FAERS Safety Report 5508162-X (Version None)
Quarter: 2007Q4

REPORT INFORMATION
  Report Type: 
  Country: None (occurrence: None)
  Receive Date: 20071106
  Receipt Date: 20071025
  Transmission Date: 20080405
  Serious: Yes (Death, Other)
  Sender: FDA-Public Use
  Company Number: US-PFIZER INC-2007090088

PATIENT
  Age: 45 Year
  Sex: Female

DRUGS (2)
  1. VORICONAZOLE [Suspect]
     Indication: CANDIDIASIS
  2. FLUCONAZOLE [Suspect]

REACTIONS (1)
  - DRUG RESISTANCE [None]
